FAERS Safety Report 18710675 (Version 1)
Quarter: 2021Q1

REPORT INFORMATION
  Report Type: Other
  Country: BD (occurrence: BD)
  Receive Date: 20210107
  Receipt Date: 20210107
  Transmission Date: 20210419
  Serious: Yes (Death)
  Sender: FDA-Public Use
  Company Number: BD-ROCHE-2744451

PATIENT
  Age: 82 Year
  Sex: Female

DRUGS (1)
  1. MABTHERA [Suspect]
     Active Substance: RITUXIMAB
     Indication: B-CELL LYMPHOMA
     Dosage: MABTHERA (2+1) CMH
     Route: 041

REACTIONS (2)
  - COVID-19 [Fatal]
  - Dyspnoea [Fatal]

NARRATIVE: CASE EVENT DATE: 20201219
